FAERS Safety Report 7177702-X (Version None)
Quarter: 2010Q4

REPORT INFORMATION
  Report Type: 
  Country: None (occurrence: None)
  Receive Date: 20101207
  Receipt Date: 20101130
  Transmission Date: 20110411
  Serious: No
  Sender: FDA-Public Use
  Company Number: 20085523

PATIENT
  Sex: Male

DRUGS (1)
  1. LIORESAL [Suspect]
     Indication: MUSCLE SPASTICITY
     Dosage: 212.62 MCG, DAILY, INTRATHECAL
     Route: 037

REACTIONS (12)
  - ASTHENIA [None]
  - CHILLS [None]
  - DEVICE ALARM ISSUE [None]
  - DRUG INEFFECTIVE [None]
  - FORMICATION [None]
  - HYPOTONIA [None]
  - IMPLANT SITE PAIN [None]
  - MUSCLE SPASTICITY [None]
  - MUSCULAR WEAKNESS [None]
  - PARAESTHESIA [None]
  - PRIAPISM [None]
  - PRURITUS [None]
